FAERS Safety Report 8519395-2 (Version None)
Quarter: 2012Q3

REPORT INFORMATION
  Report Type: 
  Country: None (occurrence: None)
  Receive Date: 20120718
  Receipt Date: 20120709
  Transmission Date: 20120928
  Serious: Yes (Hospitalization, Disabling)
  Sender: FDA-Public Use
  Company Number: PT-ABBOTT-12P-130-0955341-00

PATIENT
  Sex: Female
  Weight: 43 kg

DRUGS (8)
  1. SODIUM BICARBONATE [Concomitant]
     Indication: RENAL FAILURE CHRONIC
     Route: 048
     Dates: start: 20101130
  2. CALCITRIOL [Concomitant]
     Indication: RENAL FAILURE CHRONIC
     Dosage: 0.25 MCG 3 X WEEK
     Route: 048
     Dates: start: 20111130
  3. LEVOTHYROXINE SODIUM [Concomitant]
     Indication: HYPOTHYROIDISM
     Route: 048
     Dates: start: 20060101
  4. CATALIP [Suspect]
     Indication: HYPERLIPIDAEMIA
     Dosage: HALF CAPSULE
     Route: 048
     Dates: start: 20110901, end: 20120101
  5. RESICAL [Concomitant]
     Indication: RENAL FAILURE CHRONIC
     Route: 048
     Dates: start: 20101130
  6. CALCIUM CARBONATE [Concomitant]
     Indication: RENAL FAILURE CHRONIC
     Route: 048
     Dates: start: 20101130
  7. CATALIP [Suspect]
     Dosage: 200 MG 1 X DAY
     Route: 048
     Dates: start: 20120101, end: 20120604
  8. FERRIC HYDROXIDE POLYMALTOSE COMPLEX [Concomitant]
     Indication: RENAL FAILURE CHRONIC
     Route: 048
     Dates: start: 20101130

REACTIONS (11)
  - TRANSAMINASES INCREASED [None]
  - GASTROENTERITIS [None]
  - HEPATITIS [None]
  - BLOOD CREATINE PHOSPHOKINASE INCREASED [None]
  - RENAL IMPAIRMENT [None]
  - MYALGIA [None]
  - RHABDOMYOLYSIS [None]
  - ALANINE AMINOTRANSFERASE INCREASED [None]
  - GLOMERULAR FILTRATION RATE DECREASED [None]
  - HYPOTHYROIDISM [None]
  - ASPARTATE AMINOTRANSFERASE INCREASED [None]
